FAERS Safety Report 25786090 (Version 3)
Quarter: 2025Q4

REPORT INFORMATION
  Report Type: Spontaneous
  Country: EU (occurrence: EU)
  Receive Date: 20250910
  Receipt Date: 20251024
  Transmission Date: 20260117
  Serious: Yes (Death, Life-Threatening, Hospitalization)
  Sender: TEVA
  Company Number: EU-TEVA-VS-3369229

PATIENT
  Age: 59 Year
  Sex: Female
  Weight: 68 kg

DRUGS (9)
  1. VENLAFAXINE [Suspect]
     Active Substance: VENLAFAXINE HYDROCHLORIDE
     Indication: Depression
     Route: 065
  2. SUFENTANIL [Concomitant]
     Active Substance: SUFENTANIL
     Indication: Sedation
     Route: 065
  3. NOREPINEPHRINE [Suspect]
     Active Substance: NOREPINEPHRINE
     Indication: Shock
     Route: 065
  4. ACETAMINOPHEN [Suspect]
     Active Substance: ACETAMINOPHEN
     Indication: Product used for unknown indication
     Dosage: ESTIMATED A TOTAL OVERDOSE
     Route: 065
     Dates: start: 20230411, end: 20230411
  5. OXAZEPAM [Suspect]
     Active Substance: OXAZEPAM
     Indication: Anxiety disorder
     Dosage: ESTIMATED A TOTAL OVERDOSE
     Route: 065
     Dates: start: 20230411, end: 20230411
  6. MIRTAZAPINE [Suspect]
     Active Substance: MIRTAZAPINE
     Indication: Depression
     Dosage: ESTIMATED A TOTAL OVERDOSE
     Route: 065
     Dates: start: 20230411, end: 20230411
  7. ACETYLCYSTEINE [Suspect]
     Active Substance: ACETYLCYSTEINE
     Indication: Toxicity to various agents
     Dosage: N-ACETYLCYSTEINE
     Route: 065
  8. MIDAZOLAM [Concomitant]
     Active Substance: MIDAZOLAM
     Indication: Sedation
     Route: 065
  9. ZOPICLONE [Suspect]
     Active Substance: ZOPICLONE
     Indication: Anxiety disorder
     Dosage: ESTIMATED A TOTAL OVERDOSE
     Route: 065
     Dates: start: 20230411, end: 20230411

REACTIONS (12)
  - Multiple organ dysfunction syndrome [Fatal]
  - Serotonin syndrome [Unknown]
  - Respiratory failure [Unknown]
  - Overdose [Fatal]
  - Acute respiratory distress syndrome [Unknown]
  - Shock [Unknown]
  - Diarrhoea [Unknown]
  - Coma [Unknown]
  - Drug ineffective [Fatal]
  - Haemodynamic instability [Unknown]
  - Bezoar [Fatal]
  - Toxicity to various agents [Fatal]

NARRATIVE: CASE EVENT DATE: 20230411
